FAERS Safety Report 6202853-3 (Version None)
Quarter: 2009Q2

REPORT INFORMATION
  Report Type: 
  Country: None (occurrence: None)
  Receive Date: 20090526
  Receipt Date: 20090522
  Transmission Date: 20091009
  Serious: Yes (Life-Threatening, Other)
  Sender: FDA-Public Use
  Company Number: JP-B.I. PHARMACEUTICALS,INC./RIDGEFIELD-2009-BP-02372NB

PATIENT
  Age: 68 Year
  Sex: Male

DRUGS (5)
  1. MICARDIS [Suspect]
     Indication: HYPERTENSION
     Dosage: 40MG
     Route: 048
  2. CARDENALIN [Suspect]
     Indication: HYPERTENSION
     Dosage: .5MG
     Route: 048
     Dates: start: 20080801, end: 20090310
  3. ATELEC [Suspect]
     Indication: HYPERTENSION
     Dosage: 10MG
     Route: 048
     Dates: start: 20070201, end: 20090310
  4. ANAFRANIL [Suspect]
     Indication: DEPRESSION
     Dosage: 10MG
     Route: 048
  5. ANAFRANIL [Suspect]
     Indication: INSOMNIA

REACTIONS (1)
  - INTERSTITIAL LUNG DISEASE [None]
